FAERS Safety Report 6270799-0 (Version None)
Quarter: 2009Q3

REPORT INFORMATION
  Report Type: 
  Country: None (occurrence: None)
  Receive Date: 20090716
  Receipt Date: 20090710
  Transmission Date: 20100115
  Serious: Yes (Other)
  Sender: FDA-Public Use
  Company Number: CA-ASTRAZENECA-2009UW19460

PATIENT
  Age: 66 Year
  Sex: Female

DRUGS (5)
  1. CRESTOR [Suspect]
     Indication: BLOOD CHOLESTEROL INCREASED
     Route: 048
     Dates: start: 20090101
  2. METFORMIN HCL [Concomitant]
     Indication: DIABETES MELLITUS
  3. AVAPRO [Concomitant]
  4. APO-GLICLAZIDE [Concomitant]
  5. ENTROPHEN [Concomitant]

REACTIONS (2)
  - ARTHROPATHY [None]
  - PAIN IN EXTREMITY [None]
